FAERS Safety Report 7583352-3 (Version None)
Quarter: 2011Q2

REPORT INFORMATION
  Report Type: 
  Country: None (occurrence: None)
  Receive Date: 20110627
  Receipt Date: 20110627
  Transmission Date: 20111010
  Serious: Yes (Hospitalization)
  Sender: FDA-Public Use
  Company Number: None

PATIENT
  Age: 15 Month
  Sex: Male
  Weight: 13 kg

DRUGS (3)
  1. ORAGEL [Suspect]
  2. ORAGEL NIGHTTIME [Suspect]
  3. METHYLENE BLUE [Concomitant]

REACTIONS (1)
  - METHAEMOGLOBINAEMIA [None]
